FAERS Safety Report 6743745-0 (Version None)
Quarter: 2010Q2

REPORT INFORMATION
  Report Type: 
  Country: None (occurrence: None)
  Receive Date: 20100527
  Receipt Date: 20100521
  Transmission Date: 20101027
  Serious: Yes (Other)
  Sender: FDA-Public Use
  Company Number: US-BAYER-201015830BCC

PATIENT
  Sex: Male

DRUGS (1)
  1. DESONATE [Suspect]
     Indication: DERMATITIS CONTACT
     Route: 061

REACTIONS (2)
  - APPLICATION SITE PAIN [None]
  - EYE SWELLING [None]
